FAERS Safety Report 6969291-7 (Version None)
Quarter: 2010Q3

REPORT INFORMATION
  Report Type: 
  Country: None (occurrence: None)
  Receive Date: 20100902
  Receipt Date: 20100826
  Transmission Date: 20110219
  Serious: Yes (Other)
  Sender: FDA-Public Use
  Company Number: 2010SP046048

PATIENT
  Age: 46 Year
  Sex: Male
  Weight: 60.1 kg

DRUGS (1)
  1. TEMODAL [Suspect]
     Indication: GLIOBLASTOMA
     Dosage: 160 MG;QD;PO
     Route: 048
     Dates: start: 20090521, end: 20100527

REACTIONS (1)
  - HEPATITIS [None]
